FAERS Safety Report 19845822 (Version 4)
Quarter: 2021Q4

REPORT INFORMATION
  Report Type: Report from Study
  Country: ZA (occurrence: ZA)
  Receive Date: 20210917
  Receipt Date: 20211027
  Transmission Date: 20220303
  Serious: Yes (Disabling, Other)
  Sender: FDA-Public Use
  Company Number: ZA-SA-SAC20210827000319

PATIENT
  Age: 28 Year
  Sex: Male

DRUGS (1)
  1. TERIFLUNOMIDE [Suspect]
     Active Substance: TERIFLUNOMIDE
     Indication: Primary progressive multiple sclerosis
     Dosage: 14 MG, QD
     Route: 048

REACTIONS (9)
  - Gait disturbance [Not Recovered/Not Resolved]
  - Condition aggravated [Not Recovered/Not Resolved]
  - Multiple sclerosis relapse [Recovering/Resolving]
  - Multiple sclerosis [Unknown]
  - Vision blurred [Not Recovered/Not Resolved]
  - Visual impairment [Recovering/Resolving]
  - Fall [Recovering/Resolving]
  - Unintentional use for unapproved indication [Unknown]
  - Unevaluable event [Unknown]
